FAERS Safety Report 16719992 (Version 4)
Quarter: 2020Q1

REPORT INFORMATION
  Report Type: Spontaneous
  Country: US (occurrence: US)
  Receive Date: 20190820
  Receipt Date: 20200212
  Transmission Date: 20200409
  Serious: Yes (Other)
  Sender: FDA-Public Use
  Company Number: US-PFIZER INC-2019354982

PATIENT
  Age: 67 Year
  Sex: Female

DRUGS (3)
  1. IBRANCE [Suspect]
     Active Substance: PALBOCICLIB
     Indication: BREAST CANCER METASTATIC
     Dosage: 125 MG, CYCLIC (DAILY, 1-21DAYS Q 28 DAYS/1-21 DAYS)
     Route: 048
     Dates: start: 20190807
  2. IBRANCE [Suspect]
     Active Substance: PALBOCICLIB
     Dosage: 100 MG, CYCLIC(D1-21 Q28 DAYS)
     Route: 048
     Dates: start: 20200104
  3. IBRANCE [Suspect]
     Active Substance: PALBOCICLIB
     Dosage: 125 MG, CYCLIC (DAILY, 1-21DAYS Q 28 DAYS/1-21 DAYS)
     Route: 048
     Dates: start: 20190808

REACTIONS (10)
  - Fatigue [Recovered/Resolved]
  - Irritability [Unknown]
  - Asphyxia [Unknown]
  - Feeling of despair [Unknown]
  - Asthenia [Recovered/Resolved]
  - Myalgia [Unknown]
  - Somnolence [Unknown]
  - Anxiety [Unknown]
  - White blood cell count abnormal [Unknown]
  - White blood cell count decreased [Unknown]

NARRATIVE: CASE EVENT DATE: 201908
